FAERS Safety Report 5762765-6 (Version None)
Quarter: 2008Q2

REPORT INFORMATION
  Report Type: 
  Country: None (occurrence: None)
  Receive Date: 20080527
  Receipt Date: 20080321
  Transmission Date: 20081010
  Serious: Yes (Other)
  Sender: FDA-Public Use
  Company Number: 258213

PATIENT

DRUGS (2)
  1. HERCEPTIN [Suspect]
     Indication: BREAST CANCER METASTATIC
  2. DOCETAXEL [Suspect]
     Indication: BREAST CANCER METASTATIC

REACTIONS (1)
  - OEDEMA PERIPHERAL [None]
